FAERS Safety Report 8429915-4 (Version None)
Quarter: 2012Q2

REPORT INFORMATION
  Report Type: 
  Country: None (occurrence: None)
  Receive Date: 20120612
  Receipt Date: 20120605
  Transmission Date: 20120825
  Serious: Yes (Hospitalization, Other)
  Sender: FDA-Public Use
  Company Number: US-BAYER-2012-057418

PATIENT
  Age: 25 Year
  Sex: Female

DRUGS (4)
  1. DIFLUCAN [Concomitant]
     Dosage: 100 MG, UNK
     Dates: start: 20060808
  2. INNOHEP [Concomitant]
  3. ADIPEX-P [Concomitant]
     Dosage: 37.5 MG, UNK
     Route: 048
     Dates: start: 20060811
  4. YASMIN [Suspect]
     Indication: CONTRACEPTION
     Dosage: UNK

REACTIONS (2)
  - CHOLECYSTITIS [None]
  - DEEP VEIN THROMBOSIS [None]
